FAERS Safety Report 6641410-1 (Version None)
Quarter: 2010Q1

REPORT INFORMATION
  Report Type: 
  Country: None (occurrence: None)
  Receive Date: 20100318
  Receipt Date: 20100305
  Transmission Date: 20100710
  Serious: Yes (Death)
  Sender: FDA-Public Use
  Company Number: JP-ABBOTT-10P-087-0632685-00

PATIENT
  Age: 86 Year
  Sex: Male

DRUGS (6)
  1. LEUPLIN SR FOR INJECTION KIT [Suspect]
     Indication: PROSTATE CANCER STAGE IV
     Route: 058
     Dates: start: 20060612, end: 20070528
  2. LEUPRORELIN ACETATE [Suspect]
     Indication: PROSTATE CANCER
     Dates: start: 20060515, end: 20060515
  3. BICALUTAMIDE [Concomitant]
     Indication: PROSTATE CANCER STAGE IV
     Route: 048
     Dates: start: 20060510, end: 20070226
  4. ALOSENN [Concomitant]
     Indication: CONSTIPATION
     Dosage: .5 GRAMS/DAY
     Route: 048
  5. MAGNESIUM OXIDE [Concomitant]
     Indication: CONSTIPATION
     Route: 048
     Dates: end: 20070814
  6. DIOVAN [Concomitant]
     Indication: HYPERTENSION
     Route: 048
     Dates: end: 20070814

REACTIONS (1)
  - PROSTATE CANCER [None]
